FAERS Safety Report 6647580-3 (Version None)
Quarter: 2010Q1

REPORT INFORMATION
  Report Type: 
  Country: None (occurrence: None)
  Receive Date: 20100323
  Receipt Date: 20100323
  Transmission Date: 20100710
  Serious: Yes (Hospitalization)
  Sender: FDA-Public Use
  Company Number: None

PATIENT
  Age: 74 Year
  Sex: Male
  Weight: 112.91 kg

DRUGS (1)
  1. MORPHINE [Suspect]
     Dosage: 30 MG BID PO
     Route: 048
     Dates: start: 20090523, end: 20090527

REACTIONS (2)
  - ASTHENIA [None]
  - DYSARTHRIA [None]
